FAERS Safety Report 6572240-7 (Version None)
Quarter: 2010Q1

REPORT INFORMATION
  Report Type: 
  Country: None (occurrence: None)
  Receive Date: 20100205
  Receipt Date: 20100127
  Transmission Date: 20100710
  Serious: Yes (Other)
  Sender: FDA-Public Use
  Company Number: PHEH2009US16211

PATIENT
  Sex: Female

DRUGS (2)
  1. EXJADE [Suspect]
     Indication: IRON OVERLOAD
     Dosage: 750 MG, QD
     Route: 048
  2. EXJADE [Suspect]
     Dosage: 1000 MG DAILY
     Route: 048
     Dates: start: 20090301

REACTIONS (4)
  - COUGH [None]
  - INFLUENZA [None]
  - PYREXIA [None]
  - RHINORRHOEA [None]
